FAERS Safety Report 4785346-X (Version None)
Quarter: 2005Q3

REPORT INFORMATION
  Report Type: 
  Country: None (occurrence: None)
  Receive Date: 20050920
  Receipt Date: 20050916
  Transmission Date: 20060218
  Serious: Yes (Hospitalization, Other)
  Sender: FDA-Public Use
  Company Number: 2005124881

PATIENT
  Age: 58 Year
  Sex: Male

DRUGS (6)
  1. AMLODIPINE [Suspect]
     Indication: HYPERTENSION
  2. SIMVASTATIN [Suspect]
     Indication: HYPERCHOLESTEROLAEMIA
  3. BISOPROLOL (BISOPROLOL) [Concomitant]
  4. SPIRONOLACTONE [Concomitant]
  5. RAMIPRIL [Concomitant]
  6. WARFARIN SODIUM [Concomitant]

REACTIONS (7)
  - BACK PAIN [None]
  - EOSINOPHILIA [None]
  - GUILLAIN-BARRE SYNDROME [None]
  - HAEMOGLOBIN DECREASED [None]
  - HYPONATRAEMIA [None]
  - RECTAL HAEMORRHAGE [None]
  - RENAL FAILURE [None]
